FAERS Safety Report 7773286-3 (Version None)
Quarter: 2011Q3

REPORT INFORMATION
  Report Type: 
  Country: None (occurrence: None)
  Receive Date: 20110922
  Receipt Date: 20110913
  Transmission Date: 20111222
  Serious: Yes (Other)
  Sender: FDA-Public Use
  Company Number: US-ASTRAZENECA-2011SE54810

PATIENT
  Age: 63 Year
  Sex: Female
  Weight: 81.6 kg

DRUGS (3)
  1. CRESTOR [Suspect]
     Indication: BLOOD CHOLESTEROL
     Route: 048
  2. CRESTOR [Suspect]
     Route: 048
     Dates: start: 20110801
  3. RANIDINE [Concomitant]

REACTIONS (5)
  - SENSATION OF FOREIGN BODY [None]
  - MYOCARDIAL INFARCTION [None]
  - JOINT SWELLING [None]
  - CHEST DISCOMFORT [None]
  - DRUG HYPERSENSITIVITY [None]
